FAERS Safety Report 10053277 (Version 1)
Quarter: 2014Q2

REPORT INFORMATION
  Report Type: Spontaneous
  Country: AU (occurrence: AU)
  Receive Date: 20140402
  Receipt Date: 20140402
  Transmission Date: 20141212
  Serious: Yes (Hospitalization)
  Sender: FDA-Public Use
  Company Number: AU-ABBVIE-14K-008-1217581-00

PATIENT
  Age: 73 Year
  Sex: Female

DRUGS (2)
  1. LUCRIN [Suspect]
     Indication: PRODUCT USED FOR UNKNOWN INDICATION
     Dates: start: 20130815
  2. COVERSYL [Suspect]
     Indication: HYPERTENSION

REACTIONS (2)
  - Swollen tongue [Unknown]
  - Oedema peripheral [Unknown]
